FAERS Safety Report 7469674-5 (Version None)
Quarter: 2011Q2

REPORT INFORMATION
  Report Type: 
  Country: None (occurrence: None)
  Receive Date: 20110510
  Receipt Date: 20110503
  Transmission Date: 20111010
  Serious: Yes (Hospitalization)
  Sender: FDA-Public Use
  Company Number: US-AMGEN-USASP2011019074

PATIENT
  Age: 32 Year
  Sex: Female

DRUGS (4)
  1. ENBREL [Suspect]
     Indication: RHEUMATOID ARTHRITIS
     Dosage: 50 MG, QWK
     Route: 058
     Dates: start: 20070520, end: 20090101
  2. SYNTHROID [Concomitant]
     Dosage: 0.05 MG, QD
     Route: 048
  3. PRENATAL VITAMINS                  /01549301/ [Concomitant]
     Dosage: UNK UNK, QD
     Route: 048
  4. CALCIUM [Concomitant]
     Route: 048

REACTIONS (4)
  - ARRESTED LABOUR [None]
  - RHEUMATOID ARTHRITIS [None]
  - GESTATIONAL DIABETES [None]
  - THYROID DYSFUNCTION IN PREGNANCY [None]
